FAERS Safety Report 10565528 (Version 1)
Quarter: 2014Q4

REPORT INFORMATION
  Report Type: Spontaneous
  Country: GB (occurrence: GB)
  Receive Date: 20141105
  Receipt Date: 20141105
  Transmission Date: 20150529
  Serious: Yes (Other)
  Sender: FDA-Public Use
  Company Number: GB-JNJFOC-20141020627

PATIENT
  Age: 30 Month
  Sex: Male

DRUGS (3)
  1. STEROIDS NOS [Suspect]
     Active Substance: UNSPECIFIED INGREDIENT
     Indication: SYMPATHETIC OPHTHALMIA
     Route: 048
  2. INFLIXIMAB, RECOMBINANT [Suspect]
     Active Substance: INFLIXIMAB
     Indication: SYMPATHETIC OPHTHALMIA
     Route: 042
  3. METHOTREXATE [Suspect]
     Active Substance: METHOTREXATE
     Indication: SYMPATHETIC OPHTHALMIA
     Route: 058

REACTIONS (3)
  - Product use issue [Unknown]
  - Papilloedema [Recovering/Resolving]
  - Posterior capsule opacification [Recovering/Resolving]
